FAERS Safety Report 23213809 (Version 1)
Quarter: 2023Q4

REPORT INFORMATION
  Report Type: Spontaneous
  Country: US (occurrence: US)
  Receive Date: 20231121
  Receipt Date: 20231121
  Transmission Date: 20240110
  Serious: Yes (Other)
  Sender: FDA-Public Use
  Company Number: US-JUBILANT CADISTA PHARMACEUTICALS-2023JUB00345

PATIENT
  Age: 41 Year
  Sex: Male
  Weight: 117.91 kg

DRUGS (7)
  1. PREDNISONE [Suspect]
     Active Substance: PREDNISONE
     Indication: Nervous system disorder
     Dosage: 20 MG, 1X/DAY
     Route: 048
     Dates: start: 202206
  2. PREDNISONE [Suspect]
     Active Substance: PREDNISONE
     Indication: Intervertebral disc degeneration
  3. AMLODIPINE [Concomitant]
     Active Substance: AMLODIPINE BESYLATE
     Dosage: UNK
  4. BENAZEPRIL [Concomitant]
     Active Substance: BENAZEPRIL HYDROCHLORIDE
     Dosage: UNK
  5. PLAVIX [Concomitant]
     Active Substance: CLOPIDOGREL BISULFATE
     Dosage: UNK
  6. ASPIRIN [Concomitant]
     Active Substance: ASPIRIN
     Dosage: UNK
  7. ATORVASTATIN [Concomitant]
     Active Substance: ATORVASTATIN
     Dosage: UNK

REACTIONS (3)
  - Arteriosclerosis [Unknown]
  - Blood cholesterol increased [Unknown]
  - Off label use [Unknown]

NARRATIVE: CASE EVENT DATE: 20220601
